FAERS Safety Report 6871286-9 (Version None)
Quarter: 2010Q3

REPORT INFORMATION
  Report Type: 
  Country: None (occurrence: None)
  Receive Date: 20100723
  Receipt Date: 20100716
  Transmission Date: 20110219
  Serious: Yes (Other)
  Sender: FDA-Public Use
  Company Number: JP-PFIZER INC-2010081367

PATIENT

DRUGS (2)
  1. ZOLOFT [Suspect]
     Dosage: UNK
     Route: 048
     Dates: start: 20100607
  2. NORVASC [Concomitant]
     Dosage: UNK
     Route: 048

REACTIONS (1)
  - BLEEDING TIME PROLONGED [None]
